FAERS Safety Report 23667729 (Version 2)
Quarter: 2024Q2

REPORT INFORMATION
  Report Type: Spontaneous
  Country: JP (occurrence: JP)
  Receive Date: 20240325
  Receipt Date: 20240620
  Transmission Date: 20240715
  Serious: Yes (Hospitalization, Other)
  Sender: FDA-Public Use
  Company Number: JP-ONO-2024JP006069

PATIENT
  Age: 70 Year
  Sex: Male
  Weight: 52.5 kg

DRUGS (8)
  1. OPDIVO [Suspect]
     Active Substance: NIVOLUMAB
     Indication: Gastric cancer
     Route: 041
     Dates: start: 20230830
  2. FLUOROURACIL [Suspect]
     Active Substance: FLUOROURACIL
     Indication: Gastric cancer
     Dosage: 300 MG
     Route: 041
     Dates: start: 20230815
  3. OXALIPLATIN [Suspect]
     Active Substance: OXALIPLATIN
     Indication: Gastric cancer
     Dosage: 77 MG
     Route: 041
     Dates: start: 20230815
  4. LEVOLEUCOVORIN CALCIUM [Suspect]
     Active Substance: LEVOLEUCOVORIN CALCIUM
     Indication: Gastric cancer
     Dosage: 300 MG
     Route: 041
     Dates: start: 20230815
  5. VONOPRAZAN FUMARATE [Concomitant]
     Active Substance: VONOPRAZAN FUMARATE
     Indication: Product used for unknown indication
     Dosage: 10 MG, EVERYDAY (AFTER BREAKFAST)
     Route: 048
     Dates: start: 20230802
  6. HEPARINOID [Concomitant]
     Indication: Product used for unknown indication
     Dosage: UNK (APPLICATION TO THE FEET, ONCE DAILY)
     Route: 061
     Dates: start: 20231107
  7. LOXOPROFEN [Concomitant]
     Active Substance: LOXOPROFEN
     Indication: Abdominal pain
     Dosage: 60 MG, PRN (WHEN HAVING ABDOMINAL PAIN)
     Route: 048
     Dates: start: 20230802
  8. ACETAMINOPHEN\TRAMADOL HYDROCHLORIDE [Concomitant]
     Active Substance: ACETAMINOPHEN\TRAMADOL HYDROCHLORIDE
     Indication: Abdominal pain
     Dosage: 1 DF, PRN (WHEN HAVING ABDOMINAL PAIN)
     Route: 048
     Dates: start: 20230802

REACTIONS (6)
  - Dysphonia [Unknown]
  - Cyanosis [Unknown]
  - Respiratory failure [Unknown]
  - Interstitial lung disease [Recovering/Resolving]
  - Malaise [Unknown]
  - Dyspnoea [Unknown]

NARRATIVE: CASE EVENT DATE: 20240207
